FAERS Safety Report 9361092 (Version 1)
Quarter: 2013Q2

REPORT INFORMATION
  Report Type: Spontaneous
  Country: US (occurrence: US)
  Receive Date: 20130621
  Receipt Date: 20130621
  Transmission Date: 20140414
  Serious: Yes (Other)
  Sender: FDA-Public Use
  Company Number: US-BAYER-2013-074115

PATIENT
  Age: 39 Year
  Sex: Female
  Weight: 87.98 kg

DRUGS (7)
  1. YAZ [Suspect]
     Indication: PREMENSTRUAL SYNDROME
     Dosage: UNK
     Dates: start: 2011
  2. CEFUROXIME [Concomitant]
  3. FISH OIL [Concomitant]
  4. FLUTICASONE [Concomitant]
  5. MULTIVITAMINS [Concomitant]
  6. VITAMIN D3 [Concomitant]
  7. ZYRTEC [Concomitant]

REACTIONS (5)
  - Deep vein thrombosis [None]
  - Venous injury [None]
  - Local swelling [None]
  - Limb injury [None]
  - Exercise tolerance decreased [None]
